FAERS Safety Report 5610883-5 (Version None)
Quarter: 2008Q1

REPORT INFORMATION
  Report Type: 
  Country: None (occurrence: None)
  Receive Date: 20080201
  Receipt Date: 20080125
  Transmission Date: 20080703
  Serious: Yes (Other)
  Sender: FDA-Public Use
  Company Number: US-MERCK-0801USA05346

PATIENT
  Age: 72 Year
  Sex: Male

DRUGS (7)
  1. FOSAMAX [Suspect]
     Indication: SPINAL FRACTURE
     Route: 048
     Dates: start: 20010101, end: 20070101
  2. ZANTAC [Concomitant]
     Route: 065
  3. LEVOTHYROXINE SODIUM [Concomitant]
     Route: 065
  4. COUMADIN [Concomitant]
     Route: 065
  5. [THERAPY UNSPECIFIED] [Concomitant]
     Route: 065
  6. FERROUS SULFATE [Concomitant]
     Route: 065
  7. SIMETHICONE [Suspect]
     Route: 065

REACTIONS (12)
  - BLADDER DISORDER [None]
  - CARPAL TUNNEL SYNDROME [None]
  - CEREBROVASCULAR ACCIDENT [None]
  - EYE DISORDER [None]
  - FEELING ABNORMAL [None]
  - GASTRIC DISORDER [None]
  - INTESTINAL FUNCTIONAL DISORDER [None]
  - MIGRAINE [None]
  - MUSCLE DISORDER [None]
  - NEUROPATHY PERIPHERAL [None]
  - PAIN IN EXTREMITY [None]
  - RESTLESS LEGS SYNDROME [None]
